FAERS Safety Report 18594126 (Version 3)
Quarter: 2021Q4

REPORT INFORMATION
  Report Type: Spontaneous
  Country: US (occurrence: US)
  Receive Date: 20201209
  Receipt Date: 20211018
  Transmission Date: 20220304
  Serious: Yes (Hospitalization, Other)
  Sender: FDA-Public Use
  Company Number: US-BOEHRINGERINGELHEIM-2020-BI-066153

PATIENT
  Age: 67 Year
  Sex: Male

DRUGS (4)
  1. SYNJARDY XR [Suspect]
     Active Substance: EMPAGLIFLOZIN\METFORMIN HYDROCHLORIDE
     Indication: Type 2 diabetes mellitus
     Dosage: 5MG/1000MG ONE IN THE MORNING AND ONE AT NIGHT; EXTENDED-RELEASE
     Route: 065
     Dates: start: 2018, end: 2020
  2. SYNJARDY XR [Suspect]
     Active Substance: EMPAGLIFLOZIN\METFORMIN HYDROCHLORIDE
     Dosage: 10MG/1000MG ONE IN THE MORNING AND ONE AT NIGHT; EXTENDED-RELEASE
     Route: 065
     Dates: start: 20201130
  3. SYNJARDY XR [Suspect]
     Active Substance: EMPAGLIFLOZIN\METFORMIN HYDROCHLORIDE
     Dosage: 5-100 MG
     Route: 048
     Dates: start: 20210315
  4. TAMSULOSIN [Concomitant]
     Active Substance: TAMSULOSIN
     Indication: Product used for unknown indication
     Route: 065

REACTIONS (10)
  - Abdominal pain [Recovered/Resolved]
  - Haematuria [Recovered/Resolved]
  - Hepatic enzyme increased [Recovering/Resolving]
  - Hepatomegaly [Recovering/Resolving]
  - Abdominal lymphadenopathy [Recovering/Resolving]
  - Biliary obstruction [Not Recovered/Not Resolved]
  - Diffuse large B-cell lymphoma [Not Recovered/Not Resolved]
  - Neoplasm malignant [Not Recovered/Not Resolved]
  - Off label use [Unknown]
  - Incorrect dose administered [Unknown]

NARRATIVE: CASE EVENT DATE: 20180101
